FAERS Safety Report 7407143-9 (Version None)
Quarter: 2011Q2

REPORT INFORMATION
  Report Type: 
  Country: None (occurrence: None)
  Receive Date: 20110411
  Receipt Date: 20110407
  Transmission Date: 20111010
  Serious: Yes (Death, Other)
  Sender: FDA-Public Use
  Company Number: ES-ROXANE LABORATORIES, INC.-2011-RO-00471RO

PATIENT
  Age: 78 Year
  Sex: Female

DRUGS (2)
  1. MEGESTROL ACETATE [Suspect]
     Indication: DECREASED APPETITE
     Dosage: 160 MG
  2. LANTUS [Suspect]
     Indication: TYPE 1 DIABETES MELLITUS

REACTIONS (2)
  - ANGIOPATHY [None]
  - BLOOD GLUCOSE INCREASED [None]
